FAERS Safety Report 4558238-9 (Version None)
Quarter: 2005Q1

REPORT INFORMATION
  Report Type: 
  Country: None (occurrence: None)
  Receive Date: 20050121
  Receipt Date: 20050111
  Transmission Date: 20050727
  Serious: Yes (Hospitalization, Other)
  Sender: FDA-Public Use
  Company Number: US-AMGEN-US107014

PATIENT
  Sex: Male

DRUGS (5)
  1. EPOGEN [Suspect]
     Indication: DIALYSIS
     Dates: start: 20040601
  2. CYCLOSPORINE [Concomitant]
  3. NEPHRO-CAPS [Concomitant]
  4. ASPIRIN [Concomitant]
  5. TOPROL-XL [Concomitant]

REACTIONS (7)
  - ASTHENIA [None]
  - HYPERHIDROSIS [None]
  - KIDNEY TRANSPLANT REJECTION [None]
  - MYOCARDIAL INFARCTION [None]
  - PNEUMONIA [None]
  - RESPIRATORY DISTRESS [None]
  - THERAPEUTIC RESPONSE DECREASED [None]
